FAERS Safety Report 13912159 (Version 1)
Quarter: 2017Q3

REPORT INFORMATION
  Report Type: Spontaneous
  Country: US (occurrence: US)
  Receive Date: 20170828
  Receipt Date: 20170828
  Transmission Date: 20171127
  Serious: No
  Sender: FDA-Public Use
  Company Number: US-ROCHE-1147598

PATIENT
  Sex: Female
  Weight: 19.6 kg

DRUGS (4)
  1. NUTROPIN AQ [Suspect]
     Active Substance: SOMATROPIN
     Indication: GROWTH HORMONE DEFICIENCY
     Route: 058
  2. NUTROPIN AQ [Suspect]
     Active Substance: SOMATROPIN
     Route: 058
  3. AMOXICILLIN. [Concomitant]
     Active Substance: AMOXICILLIN
     Route: 065
  4. NUTROPIN AQ [Suspect]
     Active Substance: SOMATROPIN
     Route: 058

REACTIONS (6)
  - Nasopharyngitis [Unknown]
  - Headache [Unknown]
  - Ear pain [Unknown]
  - Oropharyngeal pain [Unknown]
  - Cough [Unknown]
  - Contusion [Unknown]
